FAERS Safety Report 18108144 (Version 1)
Quarter: 2020Q3

REPORT INFORMATION
  Report Type: Spontaneous
  Country: US (occurrence: US)
  Receive Date: 20200803
  Receipt Date: 20200803
  Transmission Date: 20201103
  Serious: Yes (Disabling, Other)
  Sender: FDA-Public Use
  Company Number: US-PURDUE-USA-2020-0159420

PATIENT
  Sex: Female

DRUGS (1)
  1. MS CONTIN [Suspect]
     Active Substance: MORPHINE SULFATE
     Indication: ROAD TRAFFIC ACCIDENT
     Dosage: 30 MG, TID
     Route: 048

REACTIONS (3)
  - Drug dependence [Unknown]
  - Exposure via breast milk [Unknown]
  - Imprisonment [Unknown]

NARRATIVE: CASE EVENT DATE: 201011
